FAERS Safety Report 7558923-0 (Version None)
Quarter: 2011Q2

REPORT INFORMATION
  Report Type: 
  Country: None (occurrence: None)
  Receive Date: 20110621
  Receipt Date: 20110608
  Transmission Date: 20111010
  Serious: No
  Sender: FDA-Public Use
  Company Number: PHHY2011CO14153

PATIENT
  Sex: Female

DRUGS (2)
  1. LORATADINE [Concomitant]
  2. TASIGNA [Suspect]
     Indication: CHRONIC MYELOID LEUKAEMIA
     Dosage: 800 MG, PER DAY
     Route: 048
     Dates: start: 20101005

REACTIONS (2)
  - PRURITUS [None]
  - RASH [None]
